FAERS Safety Report 18452989 (Version 4)
Quarter: 2021Q3

REPORT INFORMATION
  Report Type: Spontaneous
  Country: IN (occurrence: IN)
  Receive Date: 20201102
  Receipt Date: 20210909
  Transmission Date: 20211014
  Serious: Yes (Other)
  Sender: FDA-Public Use
  Company Number: IN-PFIZER INC-2020248921

PATIENT
  Age: 78 Year
  Sex: Female

DRUGS (3)
  1. FULVESTRANT INJECTION [Concomitant]
     Active Substance: FULVESTRANT
     Dosage: 500 MG, MONTHLY (ONCE IN A MONTH X 3 MONTHS)
     Route: 030
     Dates: start: 2021
  2. PALBACE [Suspect]
     Active Substance: PALBOCICLIB
     Indication: BREAST CANCER METASTATIC
     Dosage: 125MG ONCE A DAY (FOR 21DAYS)
     Route: 048
     Dates: start: 20191212
  3. PALBACE [Suspect]
     Active Substance: PALBOCICLIB
     Dosage: 125 MG, CYCLIC (DAILY FOR THREE WEEKS THEN 1 WEEK OFF)
     Dates: start: 20210208

REACTIONS (4)
  - Back pain [Unknown]
  - White blood cell count decreased [Recovering/Resolving]
  - Off label use [Unknown]
  - Spinal fracture [Unknown]

NARRATIVE: CASE EVENT DATE: 202004
